FAERS Safety Report 5400114-3 (Version None)
Quarter: 2007Q3

REPORT INFORMATION
  Report Type: 
  Country: None (occurrence: None)
  Receive Date: 20070730
  Receipt Date: 20070724
  Transmission Date: 20080115
  Serious: Yes (Other)
  Sender: FDA-Public Use
  Company Number: JP-BRISTOL-MYERS SQUIBB COMPANY-13859707

PATIENT

DRUGS (3)
  1. PARAPLATIN [Suspect]
     Indication: NEUROBLASTOMA
     Route: 041
  2. LASTET [Concomitant]
  3. ALKERAN [Concomitant]

REACTIONS (1)
  - CARDIOMYOPATHY [None]
